FAERS Safety Report 6969544-2 (Version None)
Quarter: 2010Q3

REPORT INFORMATION
  Report Type: 
  Country: None (occurrence: None)
  Receive Date: 20100907
  Receipt Date: 20100907
  Transmission Date: 20110219
  Serious: No
  Sender: FDA-Public Use
  Company Number: None

PATIENT
  Age: 54 Year
  Sex: Male
  Weight: 113.3993 kg

DRUGS (1)
  1. ACIPHEX [Suspect]
     Indication: GASTROOESOPHAGEAL REFLUX DISEASE
     Dosage: IT WAS 20 OR 30MG 2 TIMES DAILY PO
     Route: 048

REACTIONS (2)
  - HALLUCINATION [None]
  - MIDDLE INSOMNIA [None]
